FAERS Safety Report 6055114-X (Version None)
Quarter: 2009Q1

REPORT INFORMATION
  Report Type: 
  Country: None (occurrence: None)
  Receive Date: 20090123
  Receipt Date: 20090111
  Transmission Date: 20090719
  Serious: Yes (Death)
  Sender: FDA-Public Use
  Company Number: 144201

PATIENT
  Age: 42 Year
  Sex: 0

DRUGS (11)
  1. VINCRISTINE SULPHATE INJECTION, USP (VINCRISTINE) [Suspect]
     Indication: HODGKIN'S DISEASE
  2. MECHLORETHAMINE [Suspect]
     Indication: HODGKIN'S DISEASE
  3. PROCARBAZINE [Suspect]
     Indication: HODGKIN'S DISEASE
  4. PREDNISONE [Suspect]
     Indication: HODGKIN'S DISEASE
  5. DOXORUBICIN HCL [Suspect]
     Indication: HODGKIN'S DISEASE
  6. BLEOMYCIN SULFATE [Suspect]
     Indication: HODGKIN'S DISEASE
  7. CYCLOPHOSPHAMIDE [Suspect]
     Indication: HODGKIN'S DISEASE
  8. DACARBAZINE [Suspect]
     Indication: HODGKIN'S DISEASE
  9. THIOTEPA [Suspect]
     Indication: HODGKIN'S DISEASE
  10. THERAPEUTIC RADIOPHARMACEUTICALS [Suspect]
     Indication: HODGKIN'S DISEASE
     Dosage: 20.0 GY
  11. ETOPOSIDE [Suspect]
     Indication: HODGKIN'S DISEASE

REACTIONS (1)
  - NON-SMALL CELL LUNG CANCER [None]
